FAERS Safety Report 5954973-6 (Version None)
Quarter: 2008Q4

REPORT INFORMATION
  Report Type: 
  Country: None (occurrence: None)
  Receive Date: 20081113
  Receipt Date: 20081113
  Transmission Date: 20090506
  Serious: Yes (Life-Threatening)
  Sender: FDA-Public Use
  Company Number: None

PATIENT
  Age: 25 Year
  Sex: Male
  Weight: 68.0396 kg

DRUGS (1)
  1. ZOLPIDEM [Suspect]
     Indication: INSOMNIA
     Dosage: 1 AT BEDTIME NOT PO
     Route: 048
     Dates: start: 20081111, end: 20081112

REACTIONS (4)
  - DELIRIUM [None]
  - DELUSION [None]
  - INSOMNIA [None]
  - SOMNAMBULISM [None]
